FAERS Safety Report 18201811 (Version 1)
Quarter: 2020Q3

REPORT INFORMATION
  Report Type: Spontaneous
  Country: US (occurrence: US)
  Receive Date: 20200826
  Receipt Date: 20200826
  Transmission Date: 20201103
  Serious: No
  Sender: FDA-Public Use
  Company Number: None

PATIENT
  Age: 62 Year
  Sex: Female
  Weight: 56.25 kg

DRUGS (3)
  1. VITAMIN D [Concomitant]
     Active Substance: VITAMIN D NOS
  2. XIIDRA [Suspect]
     Active Substance: LIFITEGRAST
     Indication: DRY EYE
     Dosage: ?          QUANTITY:4 .2LM;?
     Route: 047
     Dates: start: 20200812, end: 20200821
  3. VAGIFEM [Concomitant]
     Active Substance: ESTRADIOL

REACTIONS (3)
  - Sinus disorder [None]
  - Eye pain [None]
  - Headache [None]

NARRATIVE: CASE EVENT DATE: 20200821
